FAERS Safety Report 25441872 (Version 1)
Quarter: 2025Q2

REPORT INFORMATION
  Report Type: Spontaneous
  Country: BR (occurrence: BR)
  Receive Date: 20250616
  Receipt Date: 20250616
  Transmission Date: 20250716
  Serious: Yes (Other)
  Sender: TAIHO ONCOLOGY INC
  Company Number: BR-SERVIER-S25004890

PATIENT
  Age: 52 Year
  Sex: Female
  Weight: 88 kg

DRUGS (5)
  1. LONSURF [Suspect]
     Active Substance: TIPIRACIL HYDROCHLORIDE\TRIFLURIDINE
     Indication: Colorectal cancer metastatic
     Dosage: 60 MG, BID, ON DAY 1-5 AND 8-12 OF EACH 28-DAY CYCLE
     Route: 048
     Dates: start: 20250401, end: 202504
  2. LONSURF [Suspect]
     Active Substance: TIPIRACIL HYDROCHLORIDE\TRIFLURIDINE
     Dosage: 60 MG, BID, ON DAY 1-5 AND 8-12 OF EACH 28-DAY CYCLE
     Route: 048
     Dates: start: 20250505, end: 202505
  3. LONSURF [Suspect]
     Active Substance: TIPIRACIL HYDROCHLORIDE\TRIFLURIDINE
     Dosage: 40 MG, QD
     Route: 048
     Dates: start: 20250602
  4. BEVACIZUMAB [Concomitant]
     Active Substance: BEVACIZUMAB
     Indication: Colorectal cancer metastatic
     Dosage: UNK UNK, EVERY 2 WEEKS
     Route: 065
     Dates: start: 20250401, end: 202505
  5. BEVACIZUMAB [Concomitant]
     Active Substance: BEVACIZUMAB
     Route: 065
     Dates: start: 20250602

REACTIONS (13)
  - Malaise [Recovered/Resolved]
  - Nausea [Recovered/Resolved]
  - Diarrhoea [Recovered/Resolved]
  - Dysgeusia [Recovered/Resolved]
  - White blood cell count decreased [Recovered/Resolved]
  - Gamma-glutamyltransferase increased [Recovered/Resolved]
  - Nausea [Recovered/Resolved]
  - Bone pain [Recovered/Resolved]
  - Gait disturbance [Recovered/Resolved]
  - Pyrexia [Recovered/Resolved]
  - Cough [Recovered/Resolved]
  - Malaise [Recovered/Resolved]
  - Pneumonia [Recovered/Resolved]

NARRATIVE: CASE EVENT DATE: 20250401
